FAERS Safety Report 7741215-4 (Version None)
Quarter: 2011Q3

REPORT INFORMATION
  Report Type: 
  Country: None (occurrence: None)
  Receive Date: 20110909
  Receipt Date: 20110830
  Transmission Date: 20111222
  Serious: Yes (Other)
  Sender: FDA-Public Use
  Company Number: PHHY2009JP22204

PATIENT
  Sex: Female
  Weight: 52 kg

DRUGS (11)
  1. SIMULECT [Suspect]
     Indication: RENAL TRANSPLANT
     Dosage: 20 MG, ONCE/SINGLE
     Route: 042
     Dates: start: 20060705
  2. PREDNISOLONE [Suspect]
     Indication: RENAL TRANSPLANT
     Dosage: 60 MG, DAILY
     Route: 048
     Dates: start: 20060703
  3. PROGRAF [Suspect]
     Indication: RENAL TRANSPLANT
     Dosage: UNK UKN, UNK
     Route: 048
     Dates: start: 20060703
  4. CELLCEPT [Concomitant]
     Indication: RENAL TRANSPLANT
     Dosage: 1500 MG, UNK
     Route: 048
     Dates: start: 20060629, end: 20060704
  5. SOLU-MEDROL [Concomitant]
     Dosage: 500 MG, UNK
     Route: 042
     Dates: start: 20060705
  6. BREDININ [Concomitant]
     Indication: RENAL TRANSPLANT
     Dosage: 400 MG, UNK
     Route: 048
     Dates: start: 20060706
  7. AMLODIPINE [Concomitant]
     Indication: HYPERTENSION
     Dosage: UNK UKN, UNK
     Route: 048
     Dates: start: 20060710
  8. SOLU-MEDROL [Concomitant]
     Indication: RENAL TRANSPLANT
     Dosage: 500 MG, UNK
     Route: 042
     Dates: start: 20060705
  9. RABEPRAZOLE SODIUM [Concomitant]
     Indication: PROPHYLAXIS AGAINST GASTROINTESTINAL ULCER
     Dosage: UNK UKN, UNK
     Route: 048
     Dates: start: 20060710
  10. ALLOPURINOL [Concomitant]
     Indication: HYPERURICAEMIA
     Dosage: UNK UKN, UNK
     Route: 048
     Dates: start: 20060901
  11. SIMULECT [Suspect]
     Dosage: 20 MG, ONCE/SINGLE
     Route: 042
     Dates: start: 20060709

REACTIONS (2)
  - HYPERGLYCAEMIA [None]
  - KIDNEY TRANSPLANT REJECTION [None]
